FAERS Safety Report 25805409 (Version 5)
Quarter: 2025Q4

REPORT INFORMATION
  Report Type: Report from Study
  Country: EU (occurrence: EU)
  Receive Date: 20250916
  Receipt Date: 20251210
  Transmission Date: 20260117
  Serious: Yes (Hospitalization)
  Sender: BLUEPRINT MEDICINES
  Company Number: EU-Blueprint Medicines Corporation-2025-AER-01979

PATIENT
  Age: 69 Year
  Sex: Male

DRUGS (12)
  1. AVAPRITINIB [Suspect]
     Active Substance: AVAPRITINIB
     Indication: Gastrointestinal stromal tumour
     Route: 048
     Dates: start: 20250702, end: 20250916
  2. ATORVASTATIN [Concomitant]
     Active Substance: ATORVASTATIN
     Indication: Dyslipidaemia
     Route: 065
     Dates: start: 1990, end: 20250926
  3. ATORVASTATIN [Concomitant]
     Active Substance: ATORVASTATIN
     Route: 065
     Dates: start: 20250927
  4. PANTOPRAZOLE [Concomitant]
     Active Substance: PANTOPRAZOLE
     Indication: Surgery
     Route: 065
     Dates: start: 2022, end: 20250926
  5. PANTOPRAZOLE [Concomitant]
     Active Substance: PANTOPRAZOLE
     Route: 065
     Dates: start: 20250927
  6. ASPIRIN [Concomitant]
     Active Substance: ASPIRIN
     Indication: Surgery
     Route: 065
     Dates: start: 2020, end: 20250926
  7. METOPROLOL [Concomitant]
     Active Substance: METOPROLOL
     Indication: Hypertension
     Route: 065
     Dates: start: 2020, end: 20250926
  8. METOPROLOL [Concomitant]
     Active Substance: METOPROLOL
     Dosage: 1 TABLET
     Route: 065
     Dates: start: 20250927
  9. RANOLAZINE [Concomitant]
     Active Substance: RANOLAZINE
     Indication: Surgery
     Route: 065
     Dates: start: 2020, end: 20250926
  10. RANOLAZINE [Concomitant]
     Active Substance: RANOLAZINE
     Dosage: 1 TABLET
     Route: 065
     Dates: start: 20250927
  11. RAMIPRIL [Concomitant]
     Active Substance: RAMIPRIL
     Indication: Hypertension
     Route: 065
     Dates: start: 2020, end: 20250926
  12. RAMIPRIL [Concomitant]
     Active Substance: RAMIPRIL
     Route: 065
     Dates: start: 20250927

REACTIONS (3)
  - Haemorrhage intracranial [Not Recovered/Not Resolved]
  - Periorbital oedema [Not Recovered/Not Resolved]
  - Headache [Recovered/Resolved]

NARRATIVE: CASE EVENT DATE: 20250811
